FAERS Safety Report 8905860 (Version 1)
Quarter: 2012Q4

REPORT INFORMATION
  Report Type: Report from Study
  Country: DE (occurrence: DE)
  Receive Date: 20121111
  Receipt Date: 20121111
  Transmission Date: 20130627
  Serious: Yes (Death, Hospitalization)
  Sender: FDA-Public Use
  Company Number: PHHY2012DE054730

PATIENT
  Age: 63 Year
  Sex: Male
  Weight: 105 kg

DRUGS (15)
  1. ZOLEDRONATE [Suspect]
     Indication: BONE DISORDER
     Route: 042
     Dates: start: 20110405
  2. ZOLEDRONATE [Suspect]
     Route: 042
     Dates: start: 20110412
  3. ZOLEDRONATE [Suspect]
     Route: 042
     Dates: start: 20110526
  4. ZOLEDRONATE [Suspect]
     Route: 042
     Dates: start: 20110626
  5. ZOLEDRONATE [Suspect]
     Route: 042
     Dates: start: 20110720
  6. ZOLEDRONATE [Suspect]
     Route: 042
     Dates: start: 20110825
  7. ZOLEDRONATE [Suspect]
     Route: 042
     Dates: start: 20110919
  8. ZOLEDRONATE [Suspect]
     Route: 042
     Dates: start: 20111024
  9. ZOLEDRONATE [Suspect]
     Route: 042
     Dates: start: 20111122
  10. ZOLEDRONATE [Suspect]
     Route: 042
     Dates: start: 20111219
  11. ZOLEDRONATE [Suspect]
     Route: 042
     Dates: start: 20120116
  12. DOCETAXEL [Concomitant]
     Indication: PROSTATE CANCER
     Dosage: 3 Cycles so far
     Dates: start: 20101122
  13. ELIGARD [Concomitant]
     Indication: PROSTATE CANCER
     Dates: start: 20071114
  14. FALITHROM [Concomitant]
     Indication: THROMBOSIS
     Dosage: 1 tablet daily
     Dates: start: 1999
  15. PREDNISOLON [Concomitant]
     Dosage: 2x5 mg, UNK
     Dates: start: 20111122, end: 20120203

REACTIONS (5)
  - Small intestine carcinoma [Fatal]
  - Malignant neoplasm progression [Fatal]
  - Cachexia [Fatal]
  - General physical health deterioration [Unknown]
  - Weight decreased [Unknown]
